FAERS Safety Report 8490560-6 (Version None)
Quarter: 2012Q3

REPORT INFORMATION
  Report Type: 
  Country: None (occurrence: None)
  Receive Date: 20120705
  Receipt Date: 20120626
  Transmission Date: 20120928
  Serious: Yes (Other)
  Sender: FDA-Public Use
  Company Number: JP-ABBOTT-12P-087-0950921-00

PATIENT
  Sex: Female

DRUGS (1)
  1. CEFDINIR [Suspect]
     Indication: CYSTITIS
     Route: 048
     Dates: start: 20120618

REACTIONS (3)
  - DIZZINESS [None]
  - FALL [None]
  - ANAEMIA [None]
